FAERS Safety Report 8148128-7 (Version None)
Quarter: 2012Q1

REPORT INFORMATION
  Report Type: 
  Country: None (occurrence: None)
  Receive Date: 20120218
  Receipt Date: 20110426
  Transmission Date: 20120608
  Serious: No
  Sender: FDA-Public Use
  Company Number: US-ALLERGAN-1105766US

PATIENT
  Sex: Female

DRUGS (4)
  1. BOTULINUM TOXIN TYPE A [Suspect]
     Indication: DYSTONIA
     Dosage: 15 UNITS, SINGLE
     Route: 030
     Dates: start: 20110406, end: 20110406
  2. VALIUM [Concomitant]
  3. BACLOFEN [Concomitant]
  4. AMITRIPTYLINE HCL [Concomitant]

REACTIONS (3)
  - DIARRHOEA [None]
  - RHINORRHOEA [None]
  - HEADACHE [None]
